FAERS Safety Report 19585752 (Version 2)
Quarter: 2025Q3

REPORT INFORMATION
  Report Type: Spontaneous
  Country: EU (occurrence: EU)
  Receive Date: 20210720
  Receipt Date: 20250904
  Transmission Date: 20251020
  Serious: Yes (Hospitalization, Other)
  Sender: PFIZER
  Company Number: EU-MEDICE ARZNEIMITTEL-MEDIKINETRETSPO-FI-2021007

PATIENT
  Age: 36 Year
  Sex: Female

DRUGS (7)
  1. PANTOPRAZOLE [Interacting]
     Active Substance: PANTOPRAZOLE
  2. METHYLPHENIDATE HYDROCHLORIDE [Interacting]
     Active Substance: METHYLPHENIDATE HYDROCHLORIDE
     Indication: Attention deficit hyperactivity disorder
     Dosage: 40 MILLIGRAM, QD
     Route: 048
  3. METHYLPHENIDATE HYDROCHLORIDE [Interacting]
     Active Substance: METHYLPHENIDATE HYDROCHLORIDE
     Dosage: 30 MILLIGRAM, QD
     Route: 048
     Dates: start: 20190524, end: 20210330
  4. AIMOVIG [Concomitant]
     Active Substance: ERENUMAB-AOOE
     Indication: Migraine prophylaxis
  5. LEVOTHYROXINE [Concomitant]
     Active Substance: LEVOTHYROXINE
     Indication: Hypothyroidism
     Route: 048
  6. SILDENAFIL [Concomitant]
     Active Substance: SILDENAFIL
     Indication: Raynaud^s phenomenon
     Route: 048
     Dates: start: 20210215, end: 20210330
  7. HYDROXYCHLOROQUINE SULFATE [Concomitant]
     Active Substance: HYDROXYCHLOROQUINE SULFATE
     Indication: Systemic lupus erythematosus
     Route: 048
     Dates: start: 20210316

REACTIONS (8)
  - Clumsiness [Recovered/Resolved]
  - Tremor [Recovered/Resolved]
  - Migraine [Recovered/Resolved]
  - Transient ischaemic attack [Recovered/Resolved]
  - Raynaud^s phenomenon [Unknown]
  - Fatigue [Recovered/Resolved]
  - Drug interaction [Unknown]
  - Contraindicated product administered [Recovered/Resolved]

NARRATIVE: CASE EVENT DATE: 20190101
